FAERS Safety Report 7538970-5 (Version None)
Quarter: 2011Q2

REPORT INFORMATION
  Report Type: 
  Country: None (occurrence: None)
  Receive Date: 20110610
  Receipt Date: 20110526
  Transmission Date: 20111010
  Serious: Yes (Hospitalization, Other)
  Sender: FDA-Public Use
  Company Number: US-BAYER-201038335NA

PATIENT
  Sex: Female
  Weight: 59.41 kg

DRUGS (7)
  1. YASMIN [Suspect]
     Indication: CONTRACEPTION
  2. LISINOPRIL [Concomitant]
     Dosage: UNK
     Dates: start: 20070222, end: 20071212
  3. PREDNISONE [Concomitant]
     Dosage: 10 MG, UNK
  4. PLAQUENIL [Concomitant]
     Dosage: DAILY DOSE 200 MG
  5. DIOVAN [Concomitant]
     Indication: HYPERTENSION
     Dosage: UNK
     Dates: start: 20030101
  6. YASMIN [Suspect]
     Indication: ACNE
     Dosage: UNK
     Dates: start: 20030701, end: 20040914
  7. NAPROXEN [Concomitant]

REACTIONS (10)
  - PULMONARY EMBOLISM [None]
  - DEEP VEIN THROMBOSIS [None]
  - COUGH [None]
  - OEDEMA PERIPHERAL [None]
  - PLEURITIC PAIN [None]
  - DYSPNOEA [None]
  - PROTEINURIA [None]
  - ATELECTASIS [None]
  - ANAEMIA [None]
  - LUNG INFILTRATION [None]
